FAERS Safety Report 26150561 (Version 1)
Quarter: 2025Q4

REPORT INFORMATION
  Report Type: Spontaneous
  Country: US (occurrence: US)
  Receive Date: 20251212
  Receipt Date: 20251212
  Transmission Date: 20260119
  Serious: Yes (Hospitalization)
  Sender: MYLAN
  Company Number: US-MYLANLABS-2025M1105385

PATIENT
  Age: 19 Year
  Sex: Female

DRUGS (4)
  1. FENTANYL [Suspect]
     Active Substance: FENTANYL
     Indication: Product used for unknown indication
     Dosage: UNK (DRUG MIXED WITH XYLAZINE)
  2. FENTANYL [Suspect]
     Active Substance: FENTANYL
     Dosage: UNK (DRUG MIXED WITH XYLAZINE)
     Route: 042
  3. FENTANYL [Suspect]
     Active Substance: FENTANYL
     Dosage: UNK (DRUG MIXED WITH XYLAZINE)
     Route: 042
  4. FENTANYL [Suspect]
     Active Substance: FENTANYL
     Dosage: UNK (DRUG MIXED WITH XYLAZINE)

REACTIONS (8)
  - Wound necrosis [Recovering/Resolving]
  - Cellulitis [Recovering/Resolving]
  - Abscess limb [Recovering/Resolving]
  - Substance abuse [Recovering/Resolving]
  - Feeling jittery [Unknown]
  - Anxiety [Unknown]
  - Hyperhidrosis [Unknown]
  - Tremor [Unknown]
